FAERS Safety Report 19795091 (Version 1)
Quarter: 2021Q3

REPORT INFORMATION
  Report Type: Spontaneous
  Country: NL (occurrence: NL)
  Receive Date: 20210907
  Receipt Date: 20210907
  Transmission Date: 20211014
  Serious: Yes (Death)
  Sender: FDA-Public Use
  Company Number: NL-TEVA-2021-NL-1948491

PATIENT
  Age: 74 Year
  Sex: Female
  Weight: 67 kg

DRUGS (5)
  1. ESOMEPRAZOL CAPSULE MSR 40MG / BRAND NAME NOT SPECIFIED [Concomitant]
     Active Substance: ESOMEPRAZOLE
     Indication: ABDOMINAL PAIN UPPER
     Dosage: 40 MG (MILLIGRAMS),THERAPY END DATE :ASKU
     Dates: start: 20200518
  2. PERTUZUMAB/TRASTUZUMAB INJVLST 60/60MG/ML / BRAND NAME NOT SPECIFIED [Suspect]
     Active Substance: PERTUZUMAB\TRASTUZUMAB
     Dosage: DOSE EVERY 3 WEEKS,THERAPY END DATE :ASKU
     Dates: start: 20210414
  3. DOCETAXEL / BRAND NAME NOT SPECIFIED [Suspect]
     Active Substance: DOCETAXEL
     Dosage: THERAPY END DATE:ASKU ,EVERY 3 WEEKS
     Dates: start: 20210414
  4. CALCIUMCARB/COLECALC KAUWTB 2,5G/880IE (1000MG CA) / CALCI?BONED3 ORAN [Concomitant]
     Dosage: THERAPY START DATE :ASKU,THERAPY END DATE :ASKU
  5. CLEMASTINE TABLET 1MG / BRAND NAME NOT SPECIFIED [Concomitant]
     Dosage: GASTRO?RESISTANT CAPSULE, 40 MG (MILLIGRAM), THERAPY END DATE :ASKU
     Dates: start: 20200518

REACTIONS (1)
  - Death [Fatal]

NARRATIVE: CASE EVENT DATE: 20210420
